FAERS Safety Report 9729177 (Version 1)
Quarter: 2013Q4

REPORT INFORMATION
  Report Type: Spontaneous
  Country: GB (occurrence: GB)
  Receive Date: 20131204
  Receipt Date: 20131204
  Transmission Date: 20140711
  Serious: Yes (Life-Threatening)
  Sender: FDA-Public Use
  Company Number: GB-EISAI INC-E2007-01441-SPO-GB

PATIENT
  Age: 52 Year
  Sex: Female
  Weight: 46.5 kg

DRUGS (3)
  1. FYCOMPA (PERAMPANEL) [Suspect]
     Indication: EPILEPSY
     Dosage: UNKNOWN
     Route: 048
     Dates: start: 20130705, end: 20131108
  2. GABAPENTIN [Concomitant]
     Indication: PRODUCT USED FOR UNKNOWN INDICATION
     Dosage: UNKNOWN
  3. LACOSAMIDE [Concomitant]
     Indication: PRODUCT USED FOR UNKNOWN INDICATION
     Dosage: UNKNOWN

REACTIONS (3)
  - Depression [Recovered/Resolved]
  - Depressed mood [Not Recovered/Not Resolved]
  - Suicide attempt [Recovered/Resolved]
